FAERS Safety Report 4617544-X (Version None)
Quarter: 2005Q1

REPORT INFORMATION
  Report Type: 
  Country: None (occurrence: None)
  Receive Date: 20050324
  Receipt Date: 20050303
  Transmission Date: 20050727
  Serious: Yes (Other)
  Sender: FDA-Public Use
  Company Number: NL-AMGEN-UK118910

PATIENT
  Sex: Male
  Weight: 70 kg

DRUGS (3)
  1. ARANESP [Suspect]
     Indication: ANAEMIA OF MALIGNANT DISEASE
     Route: 058
     Dates: start: 20041202, end: 20050225
  2. LANOXIN [Concomitant]
     Route: 048
     Dates: start: 20000101
  3. BUMETANIDE [Concomitant]
     Route: 048
     Dates: start: 20010101

REACTIONS (2)
  - APLASIA PURE RED CELL [None]
  - BONE MARROW DEPRESSION [None]
